FAERS Safety Report 15735250 (Version 1)
Quarter: 2018Q4

REPORT INFORMATION
  Report Type: Spontaneous
  Country: US (occurrence: US)
  Receive Date: 20181218
  Receipt Date: 20181218
  Transmission Date: 20190205
  Serious: Yes (Death)
  Sender: FDA-Public Use
  Company Number: None

PATIENT

DRUGS (2)
  1. TRANSDERM SCOP [Suspect]
     Active Substance: SCOPOLAMINE
  2. ATROPINE SULFATE 1% SOLUTION [Suspect]
     Active Substance: ATROPINE SULFATE

REACTIONS (1)
  - Death [None]
